FAERS Safety Report 9148383 (Version 2)
Quarter: 2014Q2

REPORT INFORMATION
  Report Type: Spontaneous
  Country: CN (occurrence: CN)
  Receive Date: 20130308
  Receipt Date: 20140512
  Transmission Date: 20141212
  Serious: Yes (Other)
  Sender: FDA-Public Use
  Company Number: PHHY2013CN021685

PATIENT
  Age: 81 Year
  Sex: Female
  Weight: 56 kg

DRUGS (2)
  1. ACLASTA [Suspect]
     Indication: OSTEOPOROSIS POSTMENOPAUSAL
     Dosage: 5 MG, UNK
     Route: 042
     Dates: start: 20130228, end: 20130228
  2. CELEBREX [Concomitant]
     Dosage: UNK UKN, UNK
     Route: 048
     Dates: start: 20130228, end: 20130302

REACTIONS (5)
  - Hyperpyrexia [Recovering/Resolving]
  - Abdominal distension [Recovering/Resolving]
  - Abdominal pain [Recovering/Resolving]
  - Dyspnoea [Recovering/Resolving]
  - Vomiting [Recovered/Resolved]
